FAERS Safety Report 16118815 (Version 1)
Quarter: 2019Q1

REPORT INFORMATION
  Report Type: Report from Study
  Country: GB (occurrence: GB)
  Receive Date: 20190326
  Receipt Date: 20190326
  Transmission Date: 20190418
  Serious: Yes (Other)
  Sender: FDA-Public Use
  Company Number: GB-JNJFOC-20180735939

PATIENT
  Sex: Male

DRUGS (1)
  1. STELARA [Suspect]
     Active Substance: USTEKINUMAB
     Indication: CROHN^S DISEASE
     Dosage: FREQUENCY 8 WEEKS AFTER INDUCTION AS DIRECTED.
     Route: 058
     Dates: start: 201803

REACTIONS (6)
  - Dyschezia [Recovered/Resolved]
  - Lower respiratory tract infection [Unknown]
  - Frequent bowel movements [Unknown]
  - Inappropriate schedule of product administration [Unknown]
  - Nasopharyngitis [Recovered/Resolved]
  - Haematochezia [Unknown]

NARRATIVE: CASE EVENT DATE: 2018
